FAERS Safety Report 23694401 (Version 1)
Quarter: 2024Q2

REPORT INFORMATION
  Report Type: Spontaneous
  Country: US (occurrence: US)
  Receive Date: 20240401
  Receipt Date: 20240401
  Transmission Date: 20240716
  Serious: Yes (Other)
  Sender: FDA-Public Use
  Company Number: US-CADILA HEALTHCARE LIMITED-US-ZYDUS-104753

PATIENT

DRUGS (4)
  1. CARVEDILOL [Suspect]
     Active Substance: CARVEDILOL
     Indication: Hypertensive urgency
     Dosage: 25 MILLIGRAM, BID
     Route: 065
  2. NOREPINEPHRINE BITARTRATE [Suspect]
     Active Substance: NOREPINEPHRINE BITARTRATE
     Indication: Hypotension
     Dosage: UNK
     Route: 065
  3. ATROPINE [Concomitant]
     Active Substance: ATROPINE\ATROPINE SULFATE
     Indication: Bradycardia
     Dosage: 0.5 MILLIGRAM
     Route: 042
  4. EPINEPHRINE [Concomitant]
     Active Substance: EPINEPHRINE
     Indication: Hypotension
     Dosage: UNK
     Route: 065

REACTIONS (7)
  - Hyperresponsive to stimuli [Unknown]
  - Electrocardiogram ST segment elevation [Recovered/Resolved]
  - Hypotension [Recovered/Resolved]
  - Bradycardia [Recovered/Resolved]
  - Lethargy [Recovered/Resolved]
  - Toxicity to various agents [Unknown]
  - Drug ineffective [Unknown]
